FAERS Safety Report 5168200-3 (Version None)
Quarter: 2006Q4

REPORT INFORMATION
  Report Type: 
  Country: None (occurrence: None)
  Receive Date: 20061208
  Receipt Date: 20061201
  Transmission Date: 20070319
  Serious: Yes (Hospitalization)
  Sender: FDA-Public Use
  Company Number: US-JNJFOC-20061201178

PATIENT
  Sex: Male

DRUGS (6)
  1. INFLIXIMAB [Suspect]
     Indication: RHEUMATOID ARTHRITIS
  2. METHOTREXATE [Concomitant]
  3. FOLIC ACID [Concomitant]
  4. BRETHINE [Concomitant]
  5. ZOCOR [Concomitant]
  6. TYLENOL [Concomitant]

REACTIONS (1)
  - CHOLECYSTECTOMY [None]
